FAERS Safety Report 12284810 (Version 1)
Quarter: 2016Q2

REPORT INFORMATION
  Report Type: Spontaneous
  Country: US (occurrence: US)
  Receive Date: 20160420
  Receipt Date: 20160420
  Transmission Date: 20160815
  Serious: No
  Sender: FDA-Public Use
  Company Number: US-TEVA-645192USA

PATIENT
  Sex: Male
  Weight: 77.18 kg

DRUGS (1)
  1. ZOLPIDEM [Suspect]
     Active Substance: ZOLPIDEM\ZOLPIDEM TARTRATE
     Indication: SLEEP DISORDER

REACTIONS (7)
  - Decreased appetite [Unknown]
  - Apathy [Unknown]
  - Product substitution issue [Unknown]
  - Depression [Unknown]
  - Libido decreased [Unknown]
  - Irritability [Unknown]
  - Mood altered [Unknown]
